FAERS Safety Report 8816140 (Version 7)
Quarter: 2013Q3

REPORT INFORMATION
  Report Type: Spontaneous
  Country: US (occurrence: US)
  Receive Date: 20120929
  Receipt Date: 20130717
  Transmission Date: 20140515
  Serious: No
  Sender: FDA-Public Use
  Company Number: US-009507513-1209USA010703

PATIENT
  Age: 51 Year
  Sex: Male
  Weight: 71.2 kg

DRUGS (3)
  1. PEGINTRON [Suspect]
     Indication: HEPATITIS C
     Dosage: 120 MICROGRAM REDIPEN, QW
     Dates: start: 20120917, end: 20130304
  2. RIBAVIRIN [Suspect]
     Indication: HEPATITIS C
     Dosage: 1000 MG, QD
     Route: 048
     Dates: start: 20120917, end: 20130304
  3. TELAPREVIR [Suspect]
     Indication: HEPATITIS C
     Dosage: UNK
     Dates: start: 20120917, end: 20121210

REACTIONS (25)
  - Somnolence [Unknown]
  - Dry mouth [Unknown]
  - Insomnia [Recovered/Resolved]
  - Decreased appetite [Recovering/Resolving]
  - Abdominal pain [Unknown]
  - Irritability [Not Recovered/Not Resolved]
  - Decreased appetite [Unknown]
  - Fatigue [Unknown]
  - Influenza like illness [Unknown]
  - Nausea [Unknown]
  - Vomiting [Unknown]
  - Laboratory test abnormal [Unknown]
  - Haemoglobin decreased [Unknown]
  - Fatigue [Unknown]
  - Haemorrhoids [Unknown]
  - Abdominal pain upper [Unknown]
  - Chills [Unknown]
  - Device malfunction [Unknown]
  - Underdose [Unknown]
  - No adverse event [Unknown]
  - Dyspnoea [Not Recovered/Not Resolved]
  - Back pain [Not Recovered/Not Resolved]
  - Pruritus [Unknown]
  - Memory impairment [Unknown]
  - Anaemia [Recovered/Resolved]
